FAERS Safety Report 25214932 (Version 2)
Quarter: 2025Q2

REPORT INFORMATION
  Report Type: Spontaneous
  Country: AR (occurrence: AR)
  Receive Date: 20250418
  Receipt Date: 20250505
  Transmission Date: 20250717
  Serious: Yes (Hospitalization)
  Sender: BIOMARIN
  Company Number: AR-BIOMARINAP-AR-2025-165240

PATIENT

DRUGS (1)
  1. NAGLAZYME [Suspect]
     Active Substance: GALSULFASE
     Indication: Mucopolysaccharidosis VI
     Dosage: UNK, QW
     Route: 042
     Dates: start: 20250123

REACTIONS (3)
  - Tracheostomy [Recovering/Resolving]
  - Otorrhoea [Recovering/Resolving]
  - Post procedural fever [Recovering/Resolving]

NARRATIVE: CASE EVENT DATE: 20250408
